FAERS Safety Report 9404243 (Version 3)
Quarter: 2016Q1

REPORT INFORMATION
  Report Type: Spontaneous
  Country: US (occurrence: US)
  Receive Date: 20130717
  Receipt Date: 20160118
  Transmission Date: 20160526
  Serious: Yes (Hospitalization, Other)
  Sender: FDA-Public Use
  Company Number: US-BAYER-2013-084334

PATIENT
  Age: 32 Year
  Sex: Female
  Weight: 63.49 kg

DRUGS (3)
  1. LISINOPRIL. [Concomitant]
     Active Substance: LISINOPRIL
  2. VALTREX [Concomitant]
     Active Substance: VALACYCLOVIR HYDROCHLORIDE
  3. MIRENA [Suspect]
     Active Substance: LEVONORGESTREL
     Indication: CONTRACEPTION
     Dosage: 20 MCG/24HR, CONT
     Route: 015
     Dates: start: 20091102, end: 20120723

REACTIONS (16)
  - Pain [None]
  - Internal injury [None]
  - Infertility female [None]
  - Abdominal pain [None]
  - Discomfort [None]
  - Device issue [None]
  - Pelvic pain [None]
  - Endometriosis [None]
  - Injury [None]
  - Emotional distress [None]
  - Polycystic ovaries [None]
  - Genital haemorrhage [None]
  - Complication associated with device [None]
  - Uterine perforation [None]
  - Depression [None]
  - Anxiety [None]

NARRATIVE: CASE EVENT DATE: 201004
